FAERS Safety Report 8793617 (Version 2)
Quarter: 2013Q2

REPORT INFORMATION
  Report Type: Spontaneous
  Country: FR (occurrence: FR)
  Receive Date: 20120917
  Receipt Date: 20130403
  Transmission Date: 20140414
  Serious: Yes (Hospitalization)
  Sender: FDA-Public Use
  Company Number: FR-VIIV HEALTHCARE LIMITED-B0828596A

PATIENT
  Age: 61 Year
  Sex: Male

DRUGS (6)
  1. KIVEXA [Suspect]
     Indication: HIV INFECTION
     Dosage: 1TAB PER DAY
     Route: 048
  2. GLUCOPHAGE [Suspect]
     Indication: TYPE 2 DIABETES MELLITUS
     Route: 048
  3. KALETRA [Suspect]
     Indication: HIV INFECTION
     Dosage: 4TAB PER DAY
     Route: 048
  4. AMOXICILLIN [Concomitant]
     Indication: LUNG DISORDER
     Route: 065
     Dates: start: 201208
  5. CLAFORAN [Concomitant]
     Indication: LUNG DISORDER
     Route: 065
     Dates: start: 201208
  6. ROVAMYCIN [Concomitant]
     Indication: LUNG DISORDER
     Route: 065
     Dates: start: 201208

REACTIONS (4)
  - Renal failure acute [Recovered/Resolved]
  - Lactic acidosis [Recovered/Resolved]
  - Hyponatraemia [Unknown]
  - Oliguria [Unknown]
